FAERS Safety Report 6344080-5 (Version None)
Quarter: 2009Q3

REPORT INFORMATION
  Report Type: 
  Country: None (occurrence: None)
  Receive Date: 20090908
  Receipt Date: 20090828
  Transmission Date: 20100115
  Serious: Yes (Life-Threatening, Hospitalization, Other)
  Sender: FDA-Public Use
  Company Number: JP-MERCK-0907USA03515

PATIENT
  Age: 37 Year
  Sex: Male

DRUGS (5)
  1. ZETIA [Suspect]
     Indication: HYPERCHOLESTEROLAEMIA
     Route: 048
     Dates: start: 20090612, end: 20090724
  2. WARFARIN POTASSIUM [Suspect]
     Indication: PROPHYLAXIS
     Route: 048
     Dates: start: 20090714, end: 20090718
  3. FUROSEMIDE [Concomitant]
     Route: 065
  4. ALFACALCIDOL [Concomitant]
     Route: 065
  5. CALCIUM CARBONATE [Concomitant]
     Route: 065

REACTIONS (3)
  - DRUG INTERACTION [None]
  - PROTHROMBIN TIME PROLONGED [None]
  - SHUNT OCCLUSION [None]
